FAERS Safety Report 20848390 (Version 2)
Quarter: 2022Q4

REPORT INFORMATION
  Report Type: Other
  Country: US (occurrence: None)
  Receive Date: 20220519
  Receipt Date: 20221216
  Transmission Date: 20230112
  Serious: Yes (Hospitalization, Disabling, Other)
  Sender: FDA-Public Use
  Company Number: US-ROCHE-2979613

PATIENT
  Age: 51 Year
  Sex: Female
  Weight: 72.640 kg

DRUGS (7)
  1. OCREVUS [Suspect]
     Active Substance: OCRELIZUMAB
     Indication: Multiple sclerosis
     Route: 042
     Dates: start: 202104
  2. OCREVUS [Suspect]
     Active Substance: OCRELIZUMAB
     Route: 042
     Dates: start: 202106
  3. OCREVUS [Suspect]
     Active Substance: OCRELIZUMAB
     Route: 042
     Dates: start: 202105
  4. TIZANIDINE [Concomitant]
     Active Substance: TIZANIDINE
     Route: 048
     Dates: start: 202104
  5. BOTOX [Concomitant]
     Active Substance: ONABOTULINUMTOXINA
  6. CRANBERRY [Concomitant]
     Active Substance: CRANBERRY
  7. MELATONIN GUMMIES [Concomitant]

REACTIONS (18)
  - Gait inability [Not Recovered/Not Resolved]
  - Insomnia [Not Recovered/Not Resolved]
  - Fatigue [Not Recovered/Not Resolved]
  - Headache [Recovered/Resolved]
  - Dysstasia [Not Recovered/Not Resolved]
  - Multiple sclerosis [Unknown]
  - Wheelchair user [Not Recovered/Not Resolved]
  - Vascular device infection [Recovered/Resolved]
  - Pyrexia [Unknown]
  - Chills [Recovered/Resolved]
  - Muscle spasticity [Recovered/Resolved]
  - Sepsis [Recovered/Resolved]
  - Osteoarthritis [Not Recovered/Not Resolved]
  - Nodule [Not Recovered/Not Resolved]
  - Atelectasis [Recovered/Resolved]
  - Joint space narrowing [Not Recovered/Not Resolved]
  - Fatigue [Unknown]
  - Muscle disorder [Recovered/Resolved]

NARRATIVE: CASE EVENT DATE: 20210401
